FAERS Safety Report 12837411 (Version 2)
Quarter: 2016Q4

REPORT INFORMATION
  Report Type: Report from Study
  Country: BR (occurrence: BR)
  Receive Date: 20161011
  Receipt Date: 20161208
  Transmission Date: 20170207
  Serious: Yes (Hospitalization)
  Sender: FDA-Public Use
  Company Number: BR-B.I. PHARMACEUTICALS,INC./RIDGEFIELD-2016-BI-60617BI

PATIENT
  Age: 74 Year
  Sex: Female
  Weight: 69.1 kg

DRUGS (12)
  1. NPH INSULIN [Concomitant]
     Active Substance: INSULIN BEEF
     Indication: TYPE 2 DIABETES MELLITUS
     Route: 058
  2. CARVEDILOL. [Concomitant]
     Active Substance: CARVEDILOL
     Indication: CARDIAC FAILURE
  3. CARVEDILOL. [Concomitant]
     Active Substance: CARVEDILOL
     Indication: HYPERTENSION
     Route: 048
  4. BLINDED LINAGLIPTIN [Suspect]
     Active Substance: LINAGLIPTIN
     Indication: TYPE 2 DIABETES MELLITUS
     Route: 048
     Dates: start: 20150204
  5. OMEPRAZOLE. [Concomitant]
     Active Substance: OMEPRAZOLE
     Indication: DYSLIPIDAEMIA
     Route: 048
  6. METFORMIN [Concomitant]
     Active Substance: METFORMIN HYDROCHLORIDE
     Indication: TYPE 2 DIABETES MELLITUS
     Route: 048
     Dates: start: 20160506
  7. AMLODIPINE [Concomitant]
     Active Substance: AMLODIPINE BESYLATE
     Indication: HYPERTENSION
     Route: 048
     Dates: start: 20160506
  8. FUROSEMIDE. [Concomitant]
     Active Substance: FUROSEMIDE
     Indication: CARDIAC FAILURE
     Route: 048
  9. ACID ACETILSALICILIC [Concomitant]
     Indication: ISCHAEMIC HEART DISEASE PROPHYLAXIS
     Route: 048
  10. CLOPIDOGREL [Concomitant]
     Active Substance: CLOPIDOGREL BISULFATE
     Indication: ISCHAEMIC HEART DISEASE PROPHYLAXIS
     Route: 048
  11. MONOCORDIL [Concomitant]
     Active Substance: ISOSORBIDE MONONITRATE
     Indication: CARDIAC FAILURE
     Route: 048
  12. ROSUVASTATIN. [Concomitant]
     Active Substance: ROSUVASTATIN
     Indication: DYSLIPIDAEMIA
     Route: 048

REACTIONS (1)
  - Pneumonia [Recovered/Resolved]

NARRATIVE: CASE EVENT DATE: 20160605
